FAERS Safety Report 7935120-8 (Version None)
Quarter: 2011Q4

REPORT INFORMATION
  Report Type: 
  Country: None (occurrence: None)
  Receive Date: 20111122
  Receipt Date: 20111114
  Transmission Date: 20120403
  Serious: Yes (Hospitalization)
  Sender: FDA-Public Use
  Company Number: US-BAYER-200926476NA

PATIENT
  Age: 35 Year
  Sex: Female
  Weight: 53.515 kg

DRUGS (16)
  1. HYDROCODONE BITARTRATE [Concomitant]
     Indication: ANALGESIC THERAPY
     Dosage: UNK
     Dates: start: 20060601
  2. BARBITURATES [Concomitant]
     Indication: HEADACHE
     Dosage: UNK
     Dates: start: 20070101
  3. SINGULAIR [Concomitant]
     Indication: MULTIPLE ALLERGIES
     Dosage: UNK
     Route: 048
     Dates: start: 20080101
  4. CYMBALTA [Concomitant]
     Dosage: 60 MG, UNK
     Route: 048
  5. YASMIN [Suspect]
     Route: 048
     Dates: start: 20071101, end: 20080717
  6. PHENYLEPHRINE HCL [Concomitant]
     Indication: MULTIPLE ALLERGIES
     Dosage: UNK
     Dates: start: 20080101
  7. YAZ [Suspect]
     Route: 048
     Dates: start: 20071101, end: 20080717
  8. KLONOPIN [Concomitant]
     Indication: HEADACHE
     Dosage: UNK
     Dates: start: 20070101
  9. IBUPROFEN [Concomitant]
     Dosage: UNK UNK, PRN
     Route: 048
  10. CHROMAGEN FA [Concomitant]
     Dosage: UNK, BID
  11. TOPAMAX [Concomitant]
     Indication: HEADACHE
     Dosage: UNK
     Dates: start: 20050601
  12. DURAHIST [Concomitant]
     Dosage: UNK
     Route: 048
     Dates: start: 20080714
  13. ROBAXIN [Concomitant]
     Indication: HEADACHE
     Dosage: 750 MG, BID
     Route: 048
     Dates: start: 20070101
  14. ZOLOFT [Concomitant]
     Indication: DEPRESSION
     Dosage: UNK
     Dates: start: 20070101
  15. BROMPHENIRAMINE [Concomitant]
     Indication: MULTIPLE ALLERGIES
     Dosage: UNK
     Dates: start: 20080101
  16. TYLOX [Concomitant]
     Indication: PAIN
     Dosage: 2X

REACTIONS (6)
  - PULMONARY EMBOLISM [None]
  - CHOLELITHIASIS [None]
  - ABDOMINAL PAIN UPPER [None]
  - CHOLECYSTITIS ACUTE [None]
  - ANXIETY [None]
  - DEEP VEIN THROMBOSIS [None]
